FAERS Safety Report 6343776-9 (Version None)
Quarter: 2009Q3

REPORT INFORMATION
  Report Type: 
  Country: None (occurrence: None)
  Receive Date: 20090908
  Receipt Date: 20090828
  Transmission Date: 20100115
  Serious: Yes (Disabling)
  Sender: FDA-Public Use
  Company Number: B0590476A

PATIENT
  Age: 6 Year
  Sex: Female
  Weight: 18.4 kg

DRUGS (4)
  1. LAMICTAL [Suspect]
     Indication: EPILEPSY
     Dosage: 100MG PER DAY
     Route: 048
     Dates: start: 20070626, end: 20081104
  2. EPILIM [Concomitant]
     Indication: EPILEPSY
     Dosage: 720MG PER DAY
     Route: 048
     Dates: start: 20040617
  3. NULYTELY [Concomitant]
     Indication: CONSTIPATION
     Route: 048
  4. LIQUID PARAFFIN [Concomitant]
     Indication: CONSTIPATION
     Route: 048

REACTIONS (4)
  - ACTIVITIES OF DAILY LIVING IMPAIRED [None]
  - DYSGRAPHIA [None]
  - INTENTION TREMOR [None]
  - QUADRIPLEGIA [None]
